FAERS Safety Report 11411296 (Version 1)
Quarter: 2015Q3

REPORT INFORMATION
  Report Type: Spontaneous
  Country: US (occurrence: US)
  Receive Date: 20150821
  Receipt Date: 20150821
  Transmission Date: 20151125
  Serious: No
  Sender: FDA-Public Use
  Company Number: US-ELI_LILLY_AND_COMPANY-US201006000065

PATIENT
  Sex: Female
  Weight: 80.27 kg

DRUGS (5)
  1. NITROGLYCERIN. [Concomitant]
     Active Substance: NITROGLYCERIN
  2. AQUAFOR [Concomitant]
  3. HUMULIN R [Suspect]
     Active Substance: INSULIN HUMAN
     Dosage: 16 U, DAILY (1/D)
     Dates: start: 20100505
  4. NOVOLIN 70/30 [Concomitant]
     Active Substance: INSULIN HUMAN
     Dosage: 40 U, EACH EVENING
  5. NOVOLIN 70/30 [Concomitant]
     Active Substance: INSULIN HUMAN
     Dosage: 50 U, EACH MORNING

REACTIONS (9)
  - Paraesthesia oral [Unknown]
  - Palpitations [Unknown]
  - Restlessness [Unknown]
  - Paraesthesia [Unknown]
  - Feeling jittery [Unknown]
  - Weight increased [Unknown]
  - Hyperhidrosis [Unknown]
  - Nervousness [Unknown]
  - Hunger [Unknown]
